FAERS Safety Report 9098168 (Version 3)
Quarter: 2013Q1

REPORT INFORMATION
  Report Type: Spontaneous
  Country: US (occurrence: US)
  Receive Date: 20130213
  Receipt Date: 20130318
  Transmission Date: 20140127
  Serious: Yes (Other)
  Sender: FDA-Public Use
  Company Number: PHEH2013US001773

PATIENT
  Age: 61 Year
  Sex: Female

DRUGS (13)
  1. AFINITOR [Suspect]
     Indication: TUBEROUS SCLEROSIS
     Dosage: 10 MG, DAILY
     Route: 048
     Dates: start: 20121228, end: 20130223
  2. COZAAR [Concomitant]
  3. ADDERALL XR [Concomitant]
     Indication: NARCOLEPSY
     Dosage: 20 MG, DAILY
     Route: 048
  4. SKELAXIN [Concomitant]
  5. LIPITOR [Concomitant]
     Indication: HYPERCHOLESTEROLAEMIA
     Dosage: 20 MG, DAILY
     Route: 048
  6. DILANTIN SODIUM [Concomitant]
  7. ZANTAC [Concomitant]
     Indication: GASTROOESOPHAGEAL REFLUX DISEASE
     Dosage: 150 MG, DAILY
     Route: 048
  8. VITAMIN D3 [Concomitant]
  9. VICODIN [Concomitant]
  10. MAXALT MLT [Concomitant]
     Indication: MIGRAINE
     Dosage: 10 MG, TID
     Route: 048
  11. PHENYTON [Concomitant]
     Indication: CONVULSION
     Dosage: 100 MG, BID
     Route: 048
  12. LOSARTAN [Concomitant]
     Indication: HYPERTENSION
     Dosage: 100 MG, DAILY
     Route: 048
  13. METOPROLOL [Concomitant]
     Indication: HYPERTENSION
     Dosage: 100 MG, DAILY
     Route: 048

REACTIONS (9)
  - Hallucination [Recovered/Resolved]
  - Malaise [Unknown]
  - Pain in extremity [Not Recovered/Not Resolved]
  - Headache [Recovering/Resolving]
  - Epistaxis [Not Recovered/Not Resolved]
  - Local swelling [Not Recovered/Not Resolved]
  - Rash [Recovering/Resolving]
  - Influenza [Not Recovered/Not Resolved]
  - Upper respiratory tract infection [Unknown]
